FAERS Safety Report 16938043 (Version 3)
Quarter: 2019Q4

REPORT INFORMATION
  Report Type: Spontaneous
  Country: US (occurrence: US)
  Receive Date: 20191018
  Receipt Date: 20191230
  Transmission Date: 20200122
  Serious: Yes (Other)
  Sender: FDA-Public Use
  Company Number: US-COOPERSURGICAL, INC.-US-2019CPS003151

PATIENT
  Sex: Female
  Weight: 47.62 kg

DRUGS (2)
  1. MELATONIN [Concomitant]
     Active Substance: MELATONIN
     Indication: PRODUCT USED FOR UNKNOWN INDICATION
     Dosage: UNK
     Route: 065
  2. PARAGARD T 380A [Suspect]
     Active Substance: COPPER
     Indication: CONTRACEPTION
     Dosage: UNK
     Route: 015
     Dates: start: 2012, end: 20191009

REACTIONS (5)
  - Device material issue [Unknown]
  - Foreign body in reproductive tract [Recovered/Resolved]
  - Arrhythmia [Recovered/Resolved]
  - Complication of device removal [Recovered/Resolved]
  - Menorrhagia [Unknown]
